FAERS Safety Report 8420748-1 (Version None)
Quarter: 2012Q2

REPORT INFORMATION
  Report Type: 
  Country: None (occurrence: None)
  Receive Date: 20120608
  Receipt Date: 20120605
  Transmission Date: 20120825
  Serious: Yes (Other)
  Sender: FDA-Public Use
  Company Number: US-PFIZER INC-2012112276

PATIENT
  Sex: Male
  Weight: 79.365 kg

DRUGS (14)
  1. SUTENT [Suspect]
     Dosage: 50 MG, EVERY OTHER DAY
     Dates: start: 20120211, end: 20120229
  2. SUTENT [Suspect]
     Dosage: 25 MG, (FREQUENCY UNSPECIFIED)
     Dates: start: 20120308, end: 20120404
  3. NAMENDA [Concomitant]
     Indication: DEMENTIA
     Dosage: 5 MG, 2X/DAY, (2 TABLETS DAILY)
  4. FLOMAX [Concomitant]
     Dosage: 0.4 MG (FREQUENCY UNSPECIFIED)
  5. CHONDROITIN/GLUCOSAMINE [Concomitant]
     Dosage: UNK
  6. GINKO BILOBA [Concomitant]
     Dosage: UNK
  7. ASCORBIC ACID [Concomitant]
     Dosage: UNK
  8. SUTENT [Suspect]
     Indication: METASTATIC RENAL CELL CARCINOMA
     Dosage: 50 MG, CYCLIC DAILY FOR 28 DAYS, FOLLOWED BY A 14 DAY REST PERIOD
     Dates: start: 20120201, end: 20120206
  9. SUTENT [Suspect]
     Dosage: 37.5 MG (3 CAPSULES OF 12.5 MG), 1X/DAY
     Dates: start: 20120419, end: 20120507
  10. ARICEPT [Concomitant]
     Indication: DEMENTIA
     Dosage: 10 MG, 1X/DAY, (ONE TABLET), AT NIGHT
  11. VITAMIN B-12 [Concomitant]
     Dosage: UNK
  12. VITAMIN D [Concomitant]
     Dosage: UNK
  13. POTASSIUM GLUCONATE [Concomitant]
     Dosage: UNK
  14. SUTENT [Suspect]
     Dosage: 25 MG, CYCLIC DAILY, X 28 DAYS Q 42 DAYS
     Dates: start: 20120525

REACTIONS (7)
  - SKIN HYPERTROPHY [None]
  - DYSGEUSIA [None]
  - PARAESTHESIA [None]
  - RENAL IMPAIRMENT [None]
  - ABDOMINAL TENDERNESS [None]
  - HEPATIC FUNCTION ABNORMAL [None]
  - DIARRHOEA [None]
